FAERS Safety Report 18021679 (Version 1)
Quarter: 2020Q3

REPORT INFORMATION
  Report Type: Spontaneous
  Country: US (occurrence: US)
  Receive Date: 20200714
  Receipt Date: 20200714
  Transmission Date: 20201103
  Serious: Yes (Other)
  Sender: FDA-Public Use
  Company Number: NVSC2020US194178

PATIENT
  Sex: Male

DRUGS (4)
  1. OXYMORPHONE HYDROCHLORIDE. [Concomitant]
     Active Substance: OXYMORPHONE HYDROCHLORIDE
     Indication: PRODUCT USED FOR UNKNOWN INDICATION
     Dosage: UNK
     Route: 065
  2. OXYCODONE HYDROCHLORIDE. [Concomitant]
     Active Substance: OXYCODONE HYDROCHLORIDE
     Indication: PRODUCT USED FOR UNKNOWN INDICATION
     Dosage: UNK
     Route: 065
  3. ICLUSIG [Concomitant]
     Active Substance: PONATINIB
     Indication: PRODUCT USED FOR UNKNOWN INDICATION
     Dosage: UNK
     Route: 065
  4. TASIGNA [Suspect]
     Active Substance: NILOTINIB
     Indication: CHRONIC MYELOID LEUKAEMIA
     Dosage: UNK
     Route: 065

REACTIONS (23)
  - Facial spasm [Unknown]
  - Retinal oedema [Unknown]
  - Eye colour change [Unknown]
  - Vitreous floaters [Unknown]
  - Vocal cord disorder [Unknown]
  - Hair growth abnormal [Unknown]
  - Drug ineffective [Unknown]
  - Philadelphia chromosome positive [Unknown]
  - Rash [Unknown]
  - Renal pain [Unknown]
  - Liver disorder [Unknown]
  - Increased appetite [Unknown]
  - Folliculitis [Unknown]
  - Dehydration [Unknown]
  - Muscle spasms [Unknown]
  - Dyspnoea [Unknown]
  - Spleen disorder [Unknown]
  - Skin discolouration [Unknown]
  - Alopecia [Unknown]
  - Dry skin [Unknown]
  - Chromaturia [Unknown]
  - Weight increased [Unknown]
  - Chest pain [Unknown]
